FAERS Safety Report 4822866-3 (Version None)
Quarter: 2005Q4

REPORT INFORMATION
  Report Type: 
  Country: None (occurrence: None)
  Receive Date: 20051107
  Receipt Date: 20051107
  Transmission Date: 20060501
  Serious: Yes (Life-Threatening, Hospitalization, Disabling)
  Sender: FDA-Public Use
  Company Number: None

PATIENT
  Age: 46 Year
  Sex: Male

DRUGS (5)
  1. LIPITOR [Suspect]
     Indication: HYPERLIPIDAEMIA
     Dosage: 1 TAB PO QD
     Route: 048
  2. LIPITOR [Concomitant]
  3. GLUCOPHAGE [Concomitant]
  4. GLUCOTROL [Concomitant]
  5. LISINOPRIL [Concomitant]

REACTIONS (5)
  - ANOREXIA [None]
  - PYREXIA [None]
  - RHABDOMYOLYSIS [None]
  - SOCIAL AVOIDANT BEHAVIOUR [None]
  - UNRESPONSIVE TO VERBAL STIMULI [None]
